FAERS Safety Report 12428390 (Version 1)
Quarter: 2016Q2

REPORT INFORMATION
  Report Type: Spontaneous
  Country: AU (occurrence: AU)
  Receive Date: 20160602
  Receipt Date: 20160602
  Transmission Date: 20160815
  Serious: Yes (Life-Threatening, Hospitalization)
  Sender: FDA-Public Use
  Company Number: AU-MYLANLABS-2016M1022802

PATIENT

DRUGS (7)
  1. EPINEPHRINE. [Suspect]
     Active Substance: EPINEPHRINE
     Indication: PRODUCT USED FOR UNKNOWN INDICATION
     Dosage: 20ML OF 1% ROPIVACAINE(200MG, 3.85MG/KG) AND ADRENALIN (1MG) DILUTED IN 200ML NORMAL SALINE
     Route: 050
  2. FENTANYL. [Suspect]
     Active Substance: FENTANYL
     Indication: SEDATION
     Route: 040
  3. PROPOFOL. [Suspect]
     Active Substance: PROPOFOL
     Indication: SEDATION
     Dosage: UNK
     Route: 040
  4. SODIUM BICARBONATE. [Suspect]
     Active Substance: SODIUM BICARBONATE
     Indication: PRODUCT USED FOR UNKNOWN INDICATION
     Dosage: 20ML OF 1% ROPIVACAINE(200MG, 3.85MG/KG) AND ADRENALIN (1MG) DILUTED IN 200ML NORMAL SALINE
     Route: 050
  5. MIDAZOLAM [Suspect]
     Active Substance: MIDAZOLAM\MIDAZOLAM HYDROCHLORIDE
     Indication: SEDATION
     Route: 040
  6. DEXMEDETOMIDINE. [Suspect]
     Active Substance: DEXMEDETOMIDINE
     Indication: SEDATION
     Route: 040
  7. ROPIVACAINE [Suspect]
     Active Substance: ROPIVACAINE
     Indication: LOCAL ANAESTHESIA
     Dosage: 20ML OF 1% ROPIVACAINE(200MG, 3.85MG/KG) AND ADRENALIN (1MG) DILUTED IN 200ML NORMAL SALINE
     Route: 050

REACTIONS (3)
  - Toxicity to various agents [Recovered/Resolved]
  - Exposure during pregnancy [Unknown]
  - Generalised tonic-clonic seizure [Recovered/Resolved]
